FAERS Safety Report 8405742-9 (Version None)
Quarter: 2012Q2

REPORT INFORMATION
  Report Type: 
  Country: None (occurrence: None)
  Receive Date: 20120323
  Receipt Date: 20110708
  Transmission Date: 20120825
  Serious: Yes (Hospitalization, Other)
  Sender: FDA-Public Use
  Company Number: 163-21880-11052364

PATIENT
  Age: 63 Year
  Sex: Female
  Weight: 50.8029 kg

DRUGS (7)
  1. LIPITOR [Concomitant]
  2. FENTANYL [Concomitant]
  3. REVLIMID [Suspect]
     Indication: MULTIPLE MYELOMA
     Dosage: 25 MG, 1 IN 1 D, PO, 10 MG, DAILY FOR 21 DAYS, PO
     Route: 048
     Dates: start: 20110531
  4. REVLIMID [Suspect]
     Indication: MULTIPLE MYELOMA
     Dosage: 25 MG, 1 IN 1 D, PO, 10 MG, DAILY FOR 21 DAYS, PO
     Route: 048
     Dates: start: 20110413, end: 20110512
  5. GLUCOPHAGE [Concomitant]
  6. PERCOCET [Concomitant]
  7. LISINOPRIL [Concomitant]

REACTIONS (5)
  - ANAEMIA [None]
  - NAUSEA [None]
  - DIARRHOEA [None]
  - DEHYDRATION [None]
  - DRUG INTOLERANCE [None]
